FAERS Safety Report 21667059 (Version 1)
Quarter: 2022Q4

REPORT INFORMATION
  Report Type: Spontaneous
  Country: US (occurrence: None)
  Receive Date: 20221130
  Receipt Date: 20221130
  Transmission Date: 20230113
  Serious: No
  Sender: FDA-Public Use
  Company Number: None

PATIENT
  Age: 55 Year
  Sex: Female
  Weight: 107.95 kg

DRUGS (1)
  1. CIMZIA [Suspect]
     Active Substance: CERTOLIZUMAB PEGOL
     Dosage: OTHER QUANTITY : 400MG (2 SYRINGES);?OTHER FREQUENCY : EVERY 4 WEEKS;?
     Route: 058
     Dates: start: 202209

REACTIONS (3)
  - Nasopharyngitis [None]
  - Cardiac disorder [None]
  - Therapy interrupted [None]
